FAERS Safety Report 12231215 (Version 8)
Quarter: 2018Q2

REPORT INFORMATION
  Report Type: Report from Study
  Country: US (occurrence: US)
  Receive Date: 20160401
  Receipt Date: 20180518
  Transmission Date: 20180711
  Serious: Yes (Hospitalization)
  Sender: FDA-Public Use
  Company Number: US-ACTELION-A-NJ2016-133539

PATIENT
  Age: 47 Year
  Sex: Female

DRUGS (3)
  1. OPSUMIT [Suspect]
     Active Substance: MACITENTAN
     Dosage: UNK
     Route: 048
  2. OPSUMIT [Suspect]
     Active Substance: MACITENTAN
     Indication: PULMONARY HYPERTENSION
     Dosage: 10 MG, QD
     Route: 048
     Dates: start: 20150514
  3. WARFARIN [Concomitant]
     Active Substance: WARFARIN

REACTIONS (18)
  - Tendon injury [Unknown]
  - Lesion excision [Unknown]
  - Diuretic therapy [Unknown]
  - Transfusion [Unknown]
  - Abdominal hernia [Unknown]
  - Wound [Unknown]
  - Rash [Unknown]
  - Cardiac disorder [Unknown]
  - Nasopharyngitis [Unknown]
  - Fluid retention [Unknown]
  - Cardiac failure [Unknown]
  - Localised infection [Unknown]
  - Oedema [Unknown]
  - Fluid overload [Unknown]
  - Pruritus [Unknown]
  - Malignant melanoma [Unknown]
  - Blood sodium decreased [Unknown]
  - Swelling face [Unknown]

NARRATIVE: CASE EVENT DATE: 201604
